FAERS Safety Report 18701798 (Version 1)
Quarter: 2021Q1

REPORT INFORMATION
  Report Type: Spontaneous
  Country: US (occurrence: US)
  Receive Date: 20210105
  Receipt Date: 20210105
  Transmission Date: 20210419
  Serious: Yes (Hospitalization)
  Sender: FDA-Public Use
  Company Number: None

PATIENT
  Age: 77 Year
  Sex: Female
  Weight: 78.6 kg

DRUGS (19)
  1. CALCIUM CARBONATE?VITAMIN D3 [Concomitant]
  2. LISINOPRIL. [Concomitant]
     Active Substance: LISINOPRIL
  3. PRAVASTATIN. [Concomitant]
     Active Substance: PRAVASTATIN
  4. TOLTERODINE ER 4MG [Concomitant]
  5. BIOTIN 5000MCG [Concomitant]
  6. MULTIVITAMIN/MINERALS [Concomitant]
  7. METAMUCIL PLUS CALCIUM [Concomitant]
  8. ASPIRIN 81MG [Concomitant]
     Active Substance: ASPIRIN
  9. PANTOPRAZOLE 20MG [Concomitant]
     Active Substance: PANTOPRAZOLE SODIUM
  10. FASLODEX [Concomitant]
     Active Substance: FULVESTRANT
  11. FERROUS SULFATE 325MG [Concomitant]
     Active Substance: FERROUS SULFATE
  12. NYSTATIN. [Concomitant]
     Active Substance: NYSTATIN
  13. POTASSIUM CHLORIDE ER 20MEQ [Concomitant]
  14. ATENOLOL 50MG [Concomitant]
     Active Substance: ATENOLOL
  15. COLACE [Concomitant]
     Active Substance: DOCUSATE SODIUM
  16. ZOLEDRONIC ACID [Concomitant]
     Active Substance: ZOLEDRONIC ACID
  17. IBRANCE [Suspect]
     Active Substance: PALBOCICLIB
     Indication: METASTASES TO BONE
     Route: 048
     Dates: start: 20200926, end: 20210105
  18. ACETAMINOPHEN 325MG [Concomitant]
  19. LOTRIMIN AF 2% [Concomitant]

REACTIONS (1)
  - Fluid retention [None]

NARRATIVE: CASE EVENT DATE: 20210105
